FAERS Safety Report 8967755 (Version 1)
Quarter: 2012Q4

REPORT INFORMATION
  Report Type: Spontaneous
  Country: US (occurrence: None)
  Receive Date: 20121207
  Receipt Date: 20121207
  Transmission Date: 20130627
  Serious: Yes (Hospitalization)
  Sender: FDA-Public Use
  Company Number: 2012US007261

PATIENT
  Age: 68 Year
  Sex: Female
  Weight: 59.2 kg

DRUGS (22)
  1. ALOXI [Suspect]
     Route: 042
     Dates: start: 20120824
  2. AFLIBERCEPT [Suspect]
     Route: 031
     Dates: start: 20121017
  3. AFLIBERCEPT [Suspect]
     Route: 031
     Dates: start: 20110914, end: 20120906
  4. AFLIBERCEPT [Suspect]
     Dates: start: 20120419, end: 20120419
  5. AFLIBERCEPT [Suspect]
     Dates: start: 20120828, end: 20120829
  6. ACETAMINOPHEN WITH CODEINE [Concomitant]
  7. VICODIN [Concomitant]
  8. GLUCOPHAGE (METFORMIN HYDROCHLORIDE) [Concomitant]
  9. GLIPIZIDE ER (GLIPIZIDE) [Concomitant]
  10. HYDROCHLOROTHIAZIDE [Concomitant]
  11. LOSARTAN [Concomitant]
  12. SIMVASTATIN [Concomitant]
  13. VITAMIN B6 (PYRIDOXINE HYDROCHLORIDE) [Concomitant]
  14. FISH OIL [Concomitant]
  15. NEULASTA (PEGFILGRASTIM) [Concomitant]
  16. PROCHLORPERAZINE [Concomitant]
  17. ONDANSETRON [Concomitant]
  18. AMLODIPINE [Concomitant]
  19. CYTOXAN (CYCLOPHOSPHAMIDE) [Concomitant]
  20. TAXOTERE (DOCETAXEL) [Concomitant]
  21. DEXAMETHASONE [Concomitant]
  22. CENTRUM SILVER (VITAMINS NOS, ZINC) [Concomitant]

REACTIONS (1)
  - Convulsion [None]
